FAERS Safety Report 8020225-6 (Version None)
Quarter: 2012Q1

REPORT INFORMATION
  Report Type: 
  Country: None (occurrence: None)
  Receive Date: 20120103
  Receipt Date: 20111229
  Transmission Date: 20120608
  Serious: Yes (Death)
  Sender: FDA-Public Use
  Company Number: BR-ROCHE-1026249

PATIENT
  Age: 8 Month
  Sex: Male

DRUGS (1)
  1. DIAZEPAM [Suspect]
     Indication: ANALGESIC THERAPY
     Dates: start: 20111219

REACTIONS (1)
  - SEPTIC SHOCK [None]
